FAERS Safety Report 23266530 (Version 4)
Quarter: 2024Q3

REPORT INFORMATION
  Report Type: Report from Study
  Country: EG (occurrence: EG)
  Receive Date: 20231206
  Receipt Date: 20240808
  Transmission Date: 20241017
  Serious: Yes (Other)
  Sender: NOVARTIS
  Company Number: EG-002147023-NVSC2022EG125865

PATIENT
  Age: 70 Year
  Sex: Female

DRUGS (10)
  1. KISQALI [Suspect]
     Active Substance: RIBOCICLIB
     Indication: Breast cancer metastatic
     Dosage: 3 DOSAGE FORM, QD (EACH TABLET IS TAKEN EVERY 30-60MINS), (FOR 21 DAYS AND 1 WEEK OFF UPON HER WORDS
     Route: 065
     Dates: start: 202109
  2. KISQALI [Suspect]
     Active Substance: RIBOCICLIB
     Dosage: 200 MG, QD (3 WEEKS THEN ONE WEEK OFF)
     Route: 048
     Dates: start: 20220101
  3. KISQALI [Suspect]
     Active Substance: RIBOCICLIB
     Dosage: 3 DOSAGE FORM, QD (EACH TABLET IS TAKEN EVERY 15 MINS) FOR 21 DAYS AND 1 WEEK OFF UPON HER WORDS)
     Route: 065
     Dates: start: 202209
  4. LORATADINE [Concomitant]
     Active Substance: LORATADINE
     Indication: Rash
     Dosage: 1 DOSAGE FORM, QD (ONLY WHEN  THE RASH APPEARS (AS MENTIONED IN EVENT 1)
     Route: 048
     Dates: start: 20230801
  5. XGEVA [Concomitant]
     Active Substance: DENOSUMAB
     Indication: Breast cancer metastatic
     Dosage: 1 DOSAGE FORM, QMO
     Route: 065
     Dates: start: 202109
  6. XGEVA [Concomitant]
     Active Substance: DENOSUMAB
     Indication: Metastases to bone
     Dosage: 1 DOSAGE FORM, QMO
     Route: 058
     Dates: start: 2022
  7. VITAMIN C [Concomitant]
     Active Substance: ASCORBIC ACID
     Indication: Supplementation therapy
     Dosage: 1 DOSAGE FORM, QD (1000)
     Route: 065
  8. ANTODINE [Concomitant]
     Indication: Gastrooesophageal reflux disease
     Dosage: : TWO TABLETS WITHOUT FOOD OR ONE TABLET WITH FOOD
     Route: 065
     Dates: start: 202209
  9. CLAMIDE [Concomitant]
     Indication: Supplementation therapy
     Dosage: 2 DOSAGE FORM, QD (1000)
     Route: 065
     Dates: start: 2023
  10. ARIMIDEX [Concomitant]
     Active Substance: ANASTROZOLE
     Indication: Prophylaxis
     Dosage: 1 DOSAGE FORM, QD
     Route: 065
     Dates: start: 202209

REACTIONS (15)
  - Tachycardia [Not Recovered/Not Resolved]
  - Cardiovascular insufficiency [Not Recovered/Not Resolved]
  - Fatigue [Not Recovered/Not Resolved]
  - Acne [Not Recovered/Not Resolved]
  - Alopecia [Recovering/Resolving]
  - Rash pruritic [Not Recovered/Not Resolved]
  - Hypersensitivity [Not Recovered/Not Resolved]
  - Nausea [Not Recovered/Not Resolved]
  - Abdominal pain upper [Not Recovered/Not Resolved]
  - Toothache [Not Recovered/Not Resolved]
  - Trigeminal neuralgia [Recovered/Resolved]
  - Haemoglobin decreased [Not Recovered/Not Resolved]
  - Vitamin D decreased [Unknown]
  - Vomiting [Recovered/Resolved]
  - Off label use [Unknown]

NARRATIVE: CASE EVENT DATE: 20210901
